FAERS Safety Report 4615815-4 (Version None)
Quarter: 2005Q1

REPORT INFORMATION
  Report Type: 
  Country: None (occurrence: None)
  Receive Date: 20050321
  Receipt Date: 20050310
  Transmission Date: 20050727
  Serious: Yes (Hospitalization)
  Sender: FDA-Public Use
  Company Number: GXKR2005US00728

PATIENT
  Age: 64 Year
  Sex: Male

DRUGS (7)
  1. METFORMIN (NGX)(MIETFORMIN) [Suspect]
     Indication: DIABETES MELLITUS NON-INSULIN-DEPENDENT
     Dosage: 500 MG, BID, ORAL
     Route: 048
  2. GKYBURIDE (GLIBENCLAMIDE) [Concomitant]
  3. TRAZODONE HCL [Concomitant]
  4. DILTIAZEM [Concomitant]
  5. LOVASTATIN [Concomitant]
  6. NITROGLYCERIN [Concomitant]
  7. LITHIUM CARBONATE [Concomitant]

REACTIONS (5)
  - ANOREXIA [None]
  - FATIGUE [None]
  - HEPATITIS CHOLESTATIC [None]
  - JAUNDICE CHOLESTATIC [None]
  - WEIGHT DECREASED [None]
